FAERS Safety Report 5121175-5 (Version None)
Quarter: 2006Q4

REPORT INFORMATION
  Report Type: 
  Country: None (occurrence: None)
  Receive Date: 20061002
  Receipt Date: 20060922
  Transmission Date: 20070319
  Serious: Yes (Other)
  Sender: FDA-Public Use
  Company Number: TPA2006A01633

PATIENT
  Sex: Male

DRUGS (1)
  1. ACTOPLUS MET [Suspect]
     Dosage: 15/850 MG, TWICE DAILY, PER ORAL
     Route: 048

REACTIONS (1)
  - CONVULSION [None]
